FAERS Safety Report 9171579 (Version 3)
Quarter: 2014Q2

REPORT INFORMATION
  Report Type: Spontaneous
  Country: US (occurrence: US)
  Receive Date: 20130319
  Receipt Date: 20140401
  Transmission Date: 20141212
  Serious: Yes (Hospitalization)
  Sender: FDA-Public Use
  Company Number: US-GLAXOSMITHKLINE-A1016273A

PATIENT
  Age: 52 Year
  Sex: Male

DRUGS (1)
  1. AVANDIA [Suspect]
     Indication: DIABETES MELLITUS
     Dosage: 8MG PER DAY
     Route: 048
     Dates: start: 200003, end: 201009

REACTIONS (5)
  - Cerebrovascular accident [Not Recovered/Not Resolved]
  - Angina pectoris [Unknown]
  - Myocardial infarction [Unknown]
  - Stent placement [Unknown]
  - Vascular graft [Unknown]
